FAERS Safety Report 13225615 (Version 2)
Quarter: 2017Q2

REPORT INFORMATION
  Report Type: Spontaneous
  Country: US (occurrence: US)
  Receive Date: 20170213
  Receipt Date: 20170418
  Transmission Date: 20170830
  Serious: Yes (Other)
  Sender: FDA-Public Use
  Company Number: US-ASTRAZENECA-2017SE14385

PATIENT
  Age: 70 Year
  Sex: Female
  Weight: 59.9 kg

DRUGS (29)
  1. NEXIUM [Suspect]
     Active Substance: ESOMEPRAZOLE MAGNESIUM
     Indication: GASTROOESOPHAGEAL REFLUX DISEASE
     Dosage: GENERIC NEXIUM
     Route: 048
  2. ECHINACEA/GOLDEN SEAL [Concomitant]
     Route: 048
  3. OMEGA-3 ACIDS [Concomitant]
     Active Substance: OMEGA-3 FATTY ACIDS
     Dosage: 1 CAPSULE DAILY
  4. GLUCOSAMINE-CHONDROIT [Concomitant]
     Dosage: 2 TABLET EVERY MORNING
  5. MECLIZINE HCL [Concomitant]
     Active Substance: MECLIZINE HYDROCHLORIDE
     Route: 048
  6. PANTAZOCINE-NALOXONE [Concomitant]
     Dosage: 1 TABLET BY MOUTH EVERY EIGHT HOURS
  7. TRANSDERM [Concomitant]
     Dosage: APPLY 1 PATCH EVERY 3 DAYS
  8. ZYRTEC [Concomitant]
     Active Substance: CETIRIZINE HYDROCHLORIDE
     Dosage: 1 CAPSULE DAILY
     Route: 048
  9. NEXIUM [Suspect]
     Active Substance: ESOMEPRAZOLE MAGNESIUM
     Indication: DYSPHAGIA
     Dosage: GENERIC NEXIUM
     Route: 048
  10. ACIDOPHILUS [Concomitant]
     Active Substance: LACTOBACILLUS ACIDOPHILUS
     Dosage: 1 TABLET TWICE DAILY
     Route: 048
  11. METOPROLOL TARTRATE. [Suspect]
     Active Substance: METOPROLOL TARTRATE
     Indication: BLOOD PRESSURE ABNORMAL
     Dosage: TAKE ONE AND ONE-HALF TABLETS BY MOUTH TWICE DAILY
     Route: 048
  12. AMLODIPINE [Concomitant]
     Active Substance: AMLODIPINE BESYLATE
     Indication: BLOOD PRESSURE ABNORMAL
     Route: 048
  13. ESTER-C [Concomitant]
     Active Substance: CALCIUM\VITAMINS
     Dosage: 1 TABLET TWICE DAILY
  14. HYDROCORTISONE BUTYRATE. [Concomitant]
     Active Substance: HYDROCORTISONE BUTYRATE
  15. TOPIRAMATE. [Concomitant]
     Active Substance: TOPIRAMATE
     Route: 048
  16. METOPROLOL TARTRATE. [Suspect]
     Active Substance: METOPROLOL TARTRATE
     Indication: BLOOD PRESSURE ABNORMAL
     Route: 048
  17. NEXIUM [Suspect]
     Active Substance: ESOMEPRAZOLE MAGNESIUM
     Indication: GASTROOESOPHAGEAL REFLUX DISEASE
     Route: 048
  18. ESTRACE [Concomitant]
     Active Substance: ESTRADIOL
  19. KETOCONAZOLE. [Concomitant]
     Active Substance: KETOCONAZOLE
  20. NASONEX [Concomitant]
     Active Substance: MOMETASONE FUROATE
  21. VENTOLIN [Concomitant]
     Active Substance: ALBUTEROL SULFATE
     Dosage: 1-2 PUFFS EVERY EIGHT HOURS AS NEEDED
     Route: 055
  22. AMLODIPINE BESYLATE. [Concomitant]
     Active Substance: AMLODIPINE BESYLATE
     Dosage: 1 TABLET BY MOUTH DAILY
     Route: 048
  23. MELATONIN [Concomitant]
     Active Substance: MELATONIN
     Dosage: 1 CAPSULE AT BEDTIME AS NEEDED
     Route: 048
  24. NEXIUM [Suspect]
     Active Substance: ESOMEPRAZOLE MAGNESIUM
     Indication: DYSPHAGIA
     Route: 048
  25. TOPAMAX [Concomitant]
     Active Substance: TOPIRAMATE
     Indication: MIGRAINE
     Route: 048
  26. IMITREX [Concomitant]
     Active Substance: SUMATRIPTAN SUCCINATE
     Indication: MIGRAINE
     Dosage: 50.0MG AS REQUIRED
     Route: 048
  27. CAL-CITRATE PLUS VITAMIN D [Concomitant]
  28. CELECOXIB. [Concomitant]
     Active Substance: CELECOXIB
     Route: 048
  29. FISH OIL [Concomitant]
     Active Substance: FISH OIL
     Dosage: 1 CAPSULE DAILY

REACTIONS (28)
  - Abdominal pain upper [Unknown]
  - Hypertension [Unknown]
  - Chronic sinusitis [Unknown]
  - Back pain [Unknown]
  - Thyroid mass [Unknown]
  - Vulvovaginal pruritus [Unknown]
  - Drug dose omission [Unknown]
  - Osteoarthritis [Unknown]
  - Atrophic vulvovaginitis [Unknown]
  - Varicose vein [Unknown]
  - Gastrooesophageal reflux disease [Not Recovered/Not Resolved]
  - Migraine [Unknown]
  - Skin candida [Unknown]
  - Off label use [Not Recovered/Not Resolved]
  - Hypersensitivity [Unknown]
  - Rash pruritic [Unknown]
  - Rhinitis allergic [Unknown]
  - Onychomycosis [Unknown]
  - Headache [Unknown]
  - Dermatitis [Unknown]
  - Joint effusion [Unknown]
  - Haemorrhoids [Unknown]
  - Osteoporosis [Unknown]
  - Pulmonary mass [Unknown]
  - Vulvovaginal candidiasis [Unknown]
  - Mitral valve incompetence [Unknown]
  - Colon adenoma [Unknown]
  - Product use in unapproved indication [Unknown]
